FAERS Safety Report 7896913-9 (Version None)
Quarter: 2011Q4

REPORT INFORMATION
  Report Type: 
  Country: None (occurrence: None)
  Receive Date: 20111107
  Receipt Date: 20111028
  Transmission Date: 20120403
  Serious: Yes (Death)
  Sender: FDA-Public Use
  Company Number: DE-BAYER-2011-104915

PATIENT
  Age: 86 Year
  Sex: Female
  Weight: 70 kg

DRUGS (4)
  1. HEPARIN [Suspect]
     Indication: CORONARY ARTERY THROMBOSIS
     Dosage: UNK
     Route: 042
     Dates: start: 20110609
  2. ASPIRIN [Suspect]
     Indication: CORONARY ARTERY DISEASE
     Dosage: 100 MG, UNK
     Route: 048
  3. REOPRO [Suspect]
     Indication: CORONARY ARTERY THROMBOSIS
     Dosage: UNK
     Route: 042
     Dates: start: 20110609
  4. CLOPIDOGREL [Suspect]
     Indication: CORONARY ARTERY THROMBOSIS
     Dosage: 150 MG, UNK
     Route: 048
     Dates: start: 20110609

REACTIONS (2)
  - RETROPERITONEAL HAEMORRHAGE [None]
  - SHOCK HAEMORRHAGIC [None]
